FAERS Safety Report 4614866-3 (Version None)
Quarter: 2005Q1

REPORT INFORMATION
  Report Type: 
  Country: None (occurrence: None)
  Receive Date: 20050318
  Receipt Date: 20050318
  Transmission Date: 20050727
  Serious: No
  Sender: FDA-Public Use
  Company Number: None

PATIENT
  Age: 48 Year
  Sex: Female
  Weight: 69.8539 kg

DRUGS (2)
  1. EFFEXOR XR [Suspect]
     Indication: ANXIETY
     Dosage: TWICE DAILY   ONCE DAILY   ORAL
     Route: 048
     Dates: start: 20010915, end: 20050210
  2. EFFEXOR XR [Suspect]
     Indication: DEPRESSION
     Dosage: TWICE DAILY   ONCE DAILY   ORAL
     Route: 048
     Dates: start: 20010915, end: 20050210

REACTIONS (10)
  - ADJUSTMENT DISORDER [None]
  - CONFUSIONAL STATE [None]
  - DIARRHOEA [None]
  - DIZZINESS [None]
  - DRUG WITHDRAWAL SYNDROME [None]
  - HEADACHE [None]
  - HYPERACUSIS [None]
  - MANIA [None]
  - NAUSEA [None]
  - VERTIGO [None]
